FAERS Safety Report 7411105-5 (Version None)
Quarter: 2011Q2

REPORT INFORMATION
  Report Type: 
  Country: None (occurrence: None)
  Receive Date: 20110413
  Receipt Date: 20100201
  Transmission Date: 20111010
  Serious: Yes (Other)
  Sender: FDA-Public Use
  Company Number: US-BRISTOL-MYERS SQUIBB COMPANY-14957815

PATIENT
  Age: 6 Decade
  Sex: Female

DRUGS (5)
  1. BENADRYL [Concomitant]
     Indication: PREMEDICATION
  2. TAXOL [Concomitant]
     Indication: NON-SMALL CELL LUNG CANCER
  3. RADIATION THERAPY [Concomitant]
  4. ERBITUX [Suspect]
     Indication: NON-SMALL CELL LUNG CANCER
  5. CARBOPLATIN [Concomitant]
     Indication: NON-SMALL CELL LUNG CANCER

REACTIONS (3)
  - BRONCHOSPASM [None]
  - COUGH [None]
  - ERYTHEMA [None]
